FAERS Safety Report 16859490 (Version 4)
Quarter: 2019Q4

REPORT INFORMATION
  Report Type: Report from Study
  Country: FR (occurrence: FR)
  Receive Date: 20190927
  Receipt Date: 20191018
  Transmission Date: 20200122
  Serious: Yes (Hospitalization)
  Sender: FDA-Public Use
  Company Number: FR-TAKEDA-2019TUS054063

PATIENT
  Sex: Male

DRUGS (9)
  1. SOLUPRED                           /00016201/ [Suspect]
     Active Substance: PREDNISOLONE
     Indication: PRODUCT USED FOR UNKNOWN INDICATION
     Dosage: 15 MILLIGRAM
     Route: 065
  2. SOLUPRED                           /00016201/ [Suspect]
     Active Substance: PREDNISOLONE
     Dosage: 20 MILLIGRAM
     Route: 065
  3. SMECTA [Concomitant]
     Active Substance: MONTMORILLONITE
     Dosage: 9 GRAM, QD
  4. TIORFAN [Concomitant]
     Active Substance: RACECADOTRIL
     Dosage: 300 MILLIGRAM, QD
  5. IMUREL                             /00001501/ [Suspect]
     Active Substance: AZATHIOPRINE SODIUM
     Indication: PRODUCT USED FOR UNKNOWN INDICATION
     Dosage: 150 MILLIGRAM, QD
     Route: 065
  6. PANTOPRAZOLE [Concomitant]
     Active Substance: PANTOPRAZOLE
     Dosage: 40 MILLIGRAM, QD
  7. VEDOLIZUMAB [Suspect]
     Active Substance: VEDOLIZUMAB
     Indication: COLITIS ULCERATIVE
     Dosage: UNK
     Route: 042
     Dates: start: 20190415
  8. SOLUPRED                           /00016201/ [Suspect]
     Active Substance: PREDNISOLONE
     Dosage: 40 MILLIGRAM, QD
     Route: 065
  9. IMOVANE [Concomitant]
     Active Substance: ZOPICLONE
     Dosage: 7.5 MILLIGRAM, QD

REACTIONS (2)
  - Colitis ulcerative [Recovered/Resolved with Sequelae]
  - Hepatic cyst [Not Recovered/Not Resolved]

NARRATIVE: CASE EVENT DATE: 20190829
